FAERS Safety Report 13235801 (Version 1)
Quarter: 2017Q1

REPORT INFORMATION
  Report Type: Spontaneous
  Country: MX (occurrence: MX)
  Receive Date: 20170215
  Receipt Date: 20170215
  Transmission Date: 20170428
  Serious: Yes (Death, Life-Threatening, Hospitalization, Other)
  Sender: FDA-Public Use
  Company Number: MX-TEVA-738947ISR

PATIENT
  Age: 23 Year
  Sex: Male

DRUGS (2)
  1. ETOPOSIDE. [Suspect]
     Active Substance: ETOPOSIDE
     Indication: METASTATIC CHORIOCARCINOMA
     Dosage: 100 MG/M2 RECEIVED ONLY FOR 3 DAYS
     Route: 065
  2. CISPLATIN. [Suspect]
     Active Substance: CISPLATIN
     Indication: METASTATIC CHORIOCARCINOMA
     Dosage: 20 MG/M2 RECEIVED ONLY FOR 3 DAYS
     Route: 065

REACTIONS (2)
  - Pulmonary haemorrhage [Fatal]
  - Respiratory disorder [Fatal]
